FAERS Safety Report 11246384 (Version 1)
Quarter: 2015Q2

REPORT INFORMATION
  Report Type: Spontaneous
  Country: US (occurrence: None)
  Receive Date: 20150616
  Receipt Date: 20150616
  Transmission Date: 20150821
  Serious: Yes (Hospitalization)
  Sender: FDA-Public Use
  Company Number: USW201411-000270

PATIENT
  Age: 81 Year
  Sex: Female
  Weight: 54.43 kg

DRUGS (3)
  1. CARBIDOPA/LEVODOPA [Concomitant]
     Active Substance: CARBIDOPA\LEVODOPA
  2. AMANTADINE [Concomitant]
     Active Substance: AMANTADINE
  3. APOKYN [Suspect]
     Active Substance: APOMORPHINE HYDROCHLORIDE
     Indication: PARKINSON^S DISEASE
     Dosage: 0.2 ML, THREE TO FOUR TIMES DAILY
     Route: 058
     Dates: start: 20140801

REACTIONS (5)
  - Peripheral swelling [None]
  - Parkinson^s disease [None]
  - Fall [None]
  - Joint swelling [None]
  - Transient global amnesia [None]

NARRATIVE: CASE EVENT DATE: 201410
